FAERS Safety Report 8500380-1 (Version None)
Quarter: 2012Q3

REPORT INFORMATION
  Report Type: 
  Country: None (occurrence: None)
  Receive Date: 20120705
  Receipt Date: 20120705
  Transmission Date: 20120928
  Serious: Yes (Hospitalization)
  Sender: FDA-Public Use
  Company Number: None

PATIENT
  Age: 77 Year
  Sex: Male
  Weight: 91 kg

DRUGS (13)
  1. THIAMINE [Concomitant]
  2. AMLODIPINE [Concomitant]
  3. ENOXAPARIN [Concomitant]
  4. FERROUS SULFATE TAB [Concomitant]
  5. TERAZOSIN HCL [Concomitant]
  6. WARFARIN SODIUM [Concomitant]
  7. ACETAMINOPHEN/HYDROCODONE BITARTRATE [Concomitant]
  8. SENNA/DOCUSATE [Concomitant]
  9. OXYCODONE HCL [Concomitant]
  10. PANTOPRAZOLE [Concomitant]
  11. SCOPOLAMINE [Suspect]
     Indication: SURGERY
     Dosage: 1.5 MG ONE TIME TOP
     Route: 061
     Dates: start: 20111115, end: 20111117
  12. ATENOLOL [Concomitant]
  13. ZOLPIDEM [Concomitant]

REACTIONS (6)
  - PSYCHOMOTOR HYPERACTIVITY [None]
  - ABNORMAL BEHAVIOUR [None]
  - DELIRIUM [None]
  - CONFUSIONAL STATE [None]
  - POST PROCEDURAL COMPLICATION [None]
  - AGGRESSION [None]
